FAERS Safety Report 13985330 (Version 1)
Quarter: 2017Q3

REPORT INFORMATION
  Report Type: Spontaneous
  Country: GB (occurrence: GB)
  Receive Date: 20170919
  Receipt Date: 20170919
  Transmission Date: 20171128
  Serious: Yes (Other)
  Sender: FDA-Public Use
  Company Number: GB-009507513-1709GBR008418

PATIENT
  Sex: Female

DRUGS (1)
  1. NEXPLANON [Suspect]
     Active Substance: ETONOGESTREL
     Indication: CONTRACEPTION
     Dosage: UNK
     Dates: start: 20170616

REACTIONS (3)
  - Abnormal behaviour [Recovered/Resolved]
  - Mood swings [Recovered/Resolved]
  - Aggression [Recovered/Resolved]
